FAERS Safety Report 14327141 (Version 11)
Quarter: 2022Q2

REPORT INFORMATION
  Report Type: Spontaneous
  Country: GB (occurrence: GB)
  Receive Date: 20171227
  Receipt Date: 20220525
  Transmission Date: 20220720
  Serious: Yes (Hospitalization, Other)
  Sender: FDA-Public Use
  Company Number: None

PATIENT
  Age: 78 Year
  Sex: Male

DRUGS (11)
  1. METFORMIN [Suspect]
     Active Substance: METFORMIN HYDROCHLORIDE
     Indication: Type 2 diabetes mellitus
     Dosage: 2000 MG, QD (NON AZ PRODUCT)
     Route: 048
  2. LISINOPRIL [Suspect]
     Active Substance: LISINOPRIL
     Indication: Hypertension
     Dosage: UNK
     Route: 048
     Dates: end: 20171012
  3. BETAMETHASONE\CALCIPOTRIENE [Concomitant]
     Active Substance: BETAMETHASONE\CALCIPOTRIENE
     Indication: Psoriasis
     Dosage: UNK
     Route: 003
  4. ALLOPURINOL [Concomitant]
     Active Substance: ALLOPURINOL
     Indication: Gout
     Dosage: UNK
     Route: 048
  5. DEXTROSE [Concomitant]
     Active Substance: DEXTROSE
     Indication: Hypoglycaemia
     Dosage: UNK
     Route: 048
  6. AMLODIPINE [Concomitant]
     Active Substance: AMLODIPINE BESYLATE
     Indication: Hypertension
     Dosage: UNK
     Route: 048
  7. AQUEOUS CREAM [Concomitant]
     Indication: Psoriasis
     Dosage: UNK
     Route: 003
  8. SIMVASTATIN [Concomitant]
     Active Substance: SIMVASTATIN
     Indication: Product used for unknown indication
     Dosage: 20 MG, QD
     Route: 048
  9. HUMALOG [Concomitant]
     Active Substance: INSULIN LISPRO
     Indication: Type 2 diabetes mellitus
     Dosage: 102 IU, QD
     Route: 048
     Dates: start: 20161025
  10. HUMALOG [Concomitant]
     Active Substance: INSULIN LISPRO
     Dosage: UNK
     Route: 048
     Dates: start: 20161025
  11. ASPIRIN [Concomitant]
     Active Substance: ASPIRIN
     Indication: Cardiovascular event prophylaxis
     Dosage: UNK
     Route: 048

REACTIONS (6)
  - Hypotension [Recovered/Resolved]
  - Epididymitis [Recovered/Resolved]
  - Acute kidney injury [Recovered/Resolved]
  - Malaise [Unknown]
  - Feeling hot [Unknown]
  - Groin pain [Unknown]

NARRATIVE: CASE EVENT DATE: 20171010
